FAERS Safety Report 11656453 (Version 5)
Quarter: 2021Q1

REPORT INFORMATION
  Report Type: Spontaneous
  Country: US (occurrence: US)
  Receive Date: 20151023
  Receipt Date: 20210202
  Transmission Date: 20210419
  Serious: Yes (Disabling)
  Sender: FDA-Public Use
  Company Number: US-SA-2015SA163474

PATIENT
  Age: 57 Year
  Sex: Male

DRUGS (3)
  1. NOVOLOG [Concomitant]
     Active Substance: INSULIN ASPART
     Dosage: UNK
     Route: 065
  2. LANTUS SOLOSTAR [Suspect]
     Active Substance: INSULIN GLARGINE
     Indication: TYPE 2 DIABETES MELLITUS
     Dosage: 30 IU,QD
     Route: 065
  3. LANTUS SOLOSTAR [Suspect]
     Active Substance: INSULIN GLARGINE
     Dosage: 20 UNITS IN THE MORNING AND 15 UNITS AT NIGHT, BID
     Route: 065

REACTIONS (5)
  - Frustration tolerance decreased [Unknown]
  - Inappropriate schedule of product administration [Unknown]
  - Blood glucose increased [Unknown]
  - Device breakage [Unknown]
  - Toe amputation [Unknown]

NARRATIVE: CASE EVENT DATE: 20150823
